FAERS Safety Report 24437935 (Version 1)
Quarter: 2024Q4

REPORT INFORMATION
  Report Type: Report from Study
  Country: CO (occurrence: CO)
  Receive Date: 20241015
  Receipt Date: 20241015
  Transmission Date: 20250115
  Serious: Yes (Death, Hospitalization, Other)
  Sender: ABBVIE
  Company Number: CO-ABBVIE-5856337

PATIENT
  Sex: Female

DRUGS (2)
  1. VENCLEXTA [Suspect]
     Active Substance: VENETOCLAX
     Indication: Acute myeloid leukaemia
     Dosage: 400 MILLIGRAM?FORM STRENGTH: 100 MILLIGRAM
     Route: 048
     Dates: start: 20240205, end: 20240716
  2. AZACITIDINE [Concomitant]
     Active Substance: AZACITIDINE
     Indication: Product used for unknown indication
     Dosage: NOT REPORTED, FREQUENCY TEXT: CYCLE PER 7 DAYS
     Route: 065
     Dates: start: 202402

REACTIONS (3)
  - Death [Fatal]
  - Acute myeloid leukaemia [Not Recovered/Not Resolved]
  - Drug resistance [Unknown]

NARRATIVE: CASE EVENT DATE: 20240101
